FAERS Safety Report 8828256 (Version 1)
Quarter: 2012Q4

REPORT INFORMATION
  Report Type: 
  Country: SG (occurrence: SG)
  Receive Date: 20121005
  Receipt Date: 20121005
  Transmission Date: 20130627
  Serious: Yes (Hospitalization)
  Sender: FDA-Public Use
  Company Number: SG-ABBOTT-12P-141-0989820-00

PATIENT
  Age: 81 Year
  Sex: Female

DRUGS (3)
  1. KLACID [Suspect]
     Indication: TUBERCULOSIS
     Route: 048
     Dates: end: 20120416
  2. AUGMENTIN [Suspect]
     Indication: TUBERCULOSIS
     Route: 048
     Dates: start: 20120412, end: 20120413
  3. ROCEPHIN [Suspect]
     Indication: TUBERCULOSIS
     Route: 042
     Dates: start: 20120412, end: 20120413

REACTIONS (2)
  - Generalised erythema [Recovered/Resolved]
  - Urticaria [Recovered/Resolved]
